FAERS Safety Report 6127788-6 (Version None)
Quarter: 2009Q1

REPORT INFORMATION
  Report Type: 
  Country: None (occurrence: None)
  Receive Date: 20090320
  Receipt Date: 20090320
  Transmission Date: 20090719
  Serious: No
  Sender: FDA-Public Use
  Company Number: None

PATIENT
  Age: 58 Year
  Sex: Female
  Weight: 68 kg

DRUGS (1)
  1. FOSAMAX [Suspect]
     Dosage: 70 MG ONCE PO QWEEK PO
     Route: 048
     Dates: start: 20090105

REACTIONS (3)
  - ARTHRALGIA [None]
  - MYALGIA [None]
  - PRODUCT QUALITY ISSUE [None]
